FAERS Safety Report 9759996 (Version 1)
Quarter: 2013Q4

REPORT INFORMATION
  Report Type: Report from Study
  Country: LB (occurrence: LB)
  Receive Date: 20131216
  Receipt Date: 20131216
  Transmission Date: 20140711
  Serious: Yes (Hospitalization)
  Sender: FDA-Public Use
  Company Number: LB-SA-2013SA129115

PATIENT
  Age: 69 Year
  Sex: Female

DRUGS (9)
  1. LANTUS SOLOSTAR [Suspect]
     Indication: DIABETES MELLITUS
     Dosage: TREATMENT START: 1 YEAR 7 MONTHS DOSE:24 UNIT(S)
     Route: 058
     Dates: start: 2012
  2. SOLOSTAR [Concomitant]
     Indication: DEVICE THERAPY
     Dosage: TREATMENT START: 1 YEAR 7 MONTHS
     Dates: start: 2012
  3. CO-DIOVAN [Concomitant]
     Route: 048
  4. LERCADIP [Concomitant]
     Route: 048
  5. CONCOR [Concomitant]
     Route: 048
  6. SINTROM [Concomitant]
     Route: 048
  7. MODURETIC [Concomitant]
     Route: 048
  8. TULIP [Concomitant]
     Route: 048
  9. ISOKET [Concomitant]
     Route: 048

REACTIONS (3)
  - Hypotension [Not Recovered/Not Resolved]
  - Cardiac valve disease [Not Recovered/Not Resolved]
  - Diabetes mellitus inadequate control [Not Recovered/Not Resolved]
